FAERS Safety Report 17246512 (Version 1)
Quarter: 2020Q1

REPORT INFORMATION
  Report Type: Spontaneous
  Country: US (occurrence: US)
  Receive Date: 20200107
  Receipt Date: 20200107
  Transmission Date: 20200409
  Serious: No
  Sender: FDA-Public Use
  Company Number: None

PATIENT
  Age: 39 Year
  Sex: Female
  Weight: 93.6 kg

DRUGS (3)
  1. ELIQUIS [Suspect]
     Active Substance: APIXABAN
     Indication: THROMBOSIS
     Dosage: ?          QUANTITY:1 CAPSULE(S);?
     Route: 048
     Dates: start: 20190829, end: 20200106
  2. ACID REFLUX MEDICATION [Concomitant]
     Active Substance: UNSPECIFIED INGREDIENT
  3. NASAL SPRAYS [Concomitant]

REACTIONS (5)
  - Dyspnoea [None]
  - Migraine [None]
  - Heart rate increased [None]
  - Toothache [None]
  - Pain [None]

NARRATIVE: CASE EVENT DATE: 20191212
